FAERS Safety Report 5125356-6 (Version None)
Quarter: 2006Q4

REPORT INFORMATION
  Report Type: 
  Country: None (occurrence: None)
  Receive Date: 20061006
  Receipt Date: 20060607
  Transmission Date: 20070319
  Serious: Yes (Hospitalization, Other)
  Sender: FDA-Public Use
  Company Number: 2006057817

PATIENT
  Age: 50 Year
  Sex: Male
  Weight: 74.8435 kg

DRUGS (5)
  1. CELEBREX [Suspect]
     Indication: PAIN IN EXTREMITY
     Dosage: 400 MG (200 MG, 2 IN 1 D), ORAL
     Route: 048
     Dates: start: 20040901
  2. TRAMADOL HCL [Concomitant]
  3. ALTACE [Concomitant]
  4. NPH INSULIN [Concomitant]
  5. INSULIN, REGULAR (INSULIN) [Concomitant]

REACTIONS (11)
  - BALANCE DISORDER [None]
  - CEREBRAL ISCHAEMIA [None]
  - CEREBROVASCULAR ACCIDENT [None]
  - CEREBROVASCULAR DISORDER [None]
  - DIABETES MELLITUS INADEQUATE CONTROL [None]
  - DYSGRAPHIA [None]
  - LACUNAR INFARCTION [None]
  - LOWER LIMB FRACTURE [None]
  - SPEECH DISORDER [None]
  - TRANSIENT ISCHAEMIC ATTACK [None]
  - UPPER LIMB FRACTURE [None]
